FAERS Safety Report 23844562 (Version 2)
Quarter: 2024Q2

REPORT INFORMATION
  Report Type: Spontaneous
  Country: US (occurrence: US)
  Receive Date: 20240510
  Receipt Date: 20240530
  Transmission Date: 20240716
  Serious: Yes (Other)
  Sender: FDA-Public Use
  Company Number: US-VEROBIOTECH-2024USVEROSPO00085

PATIENT
  Age: 18 Month

DRUGS (2)
  1. GENOSYL [Suspect]
     Active Substance: NITRIC OXIDE
     Indication: Pulmonary hypertension
     Dosage: 20 PPM
  2. GENOSYL [Suspect]
     Active Substance: NITRIC OXIDE
     Indication: Hypoxia
     Dosage: 40 PPM

REACTIONS (2)
  - Oxygen saturation decreased [Unknown]
  - Device issue [Unknown]
